FAERS Safety Report 9721891 (Version 1)
Quarter: 2013Q4

REPORT INFORMATION
  Report Type: Report from Study
  Country: US (occurrence: US)
  Receive Date: 20131201
  Receipt Date: 20131201
  Transmission Date: 20140711
  Serious: Yes (Hospitalization)
  Sender: FDA-Public Use
  Company Number: US-ROCHE-1308222

PATIENT
  Age: 65 Year
  Sex: Female

DRUGS (4)
  1. BEVACIZUMAB [Suspect]
     Indication: GLIOBLASTOMA
     Dosage: MOST RECENT DOSE WAS TAKEN ON 05/NOV/2013
     Route: 065
  2. VORINOSTAT [Suspect]
     Indication: GLIOBLASTOMA
     Dosage: MOST RECENT DOSE TAKEN ON 11/NOV/2013
     Route: 065
  3. KEPPRA [Concomitant]
     Dosage: BY MOUTH
     Route: 065
  4. METFORMIN [Concomitant]
     Route: 065

REACTIONS (1)
  - Convulsion [Unknown]
